FAERS Safety Report 4879249-X (Version None)
Quarter: 2005Q4

REPORT INFORMATION
  Report Type: 
  Country: None (occurrence: None)
  Receive Date: 20051205
  Receipt Date: 20050428
  Transmission Date: 20060501
  Serious: Yes (Hospitalization)
  Sender: FDA-Public Use
  Company Number: 2005-127885-NL

PATIENT
  Age: 45 Year
  Sex: Female
  Weight: 59 kg

DRUGS (1)
  1. NUVARING [Suspect]
     Dosage: VAGINAL
     Route: 067
     Dates: start: 20050101

REACTIONS (2)
  - PULMONARY EMBOLISM [None]
  - PULMONARY INFARCTION [None]
